FAERS Safety Report 5646962-6 (Version None)
Quarter: 2008Q1

REPORT INFORMATION
  Report Type: 
  Country: None (occurrence: None)
  Receive Date: 20080303
  Receipt Date: 20080226
  Transmission Date: 20080703
  Serious: Yes (Hospitalization)
  Sender: FDA-Public Use
  Company Number: A0711979A

PATIENT
  Age: 9 Year
  Sex: Male

DRUGS (2)
  1. ADVAIR DISKUS 100/50 [Suspect]
     Indication: COUGH
     Route: 055
     Dates: start: 20080128, end: 20080130
  2. AMOXICILLIN [Concomitant]
     Dates: end: 20080129

REACTIONS (9)
  - LIP SWELLING [None]
  - LOCAL SWELLING [None]
  - OCULAR HYPERAEMIA [None]
  - OROPHARYNGEAL PLAQUE [None]
  - PYREXIA [None]
  - SOMNOLENCE [None]
  - STEVENS-JOHNSON SYNDROME [None]
  - SWELLING [None]
  - VOMITING [None]
